FAERS Safety Report 25776424 (Version 1)
Quarter: 2025Q3

REPORT INFORMATION
  Report Type: Spontaneous
  Country: US (occurrence: US)
  Receive Date: 20250909
  Receipt Date: 20250909
  Transmission Date: 20251021
  Serious: No
  Sender: DOMPE FARMACEUTICI
  Company Number: US-FARMAPROD-202408-3094

PATIENT
  Sex: Female
  Weight: 72.8 kg

DRUGS (26)
  1. OXERVATE [Suspect]
     Active Substance: CENEGERMIN-BKBJ
     Indication: Neurotrophic keratopathy
     Route: 047
     Dates: start: 20200504, end: 20200629
  2. OXERVATE [Suspect]
     Active Substance: CENEGERMIN-BKBJ
     Indication: Neurotrophic keratopathy
     Route: 047
     Dates: start: 20201113
  3. OXERVATE [Suspect]
     Active Substance: CENEGERMIN-BKBJ
     Route: 047
     Dates: start: 20240612, end: 20240807
  4. OXERVATE [Suspect]
     Active Substance: CENEGERMIN-BKBJ
     Route: 047
     Dates: start: 20240808
  5. OXERVATE [Suspect]
     Active Substance: CENEGERMIN-BKBJ
  6. MELATONIN [Concomitant]
     Active Substance: MELATONIN
  7. REFRESH CELLUVISC [Concomitant]
     Active Substance: CARBOXYMETHYLCELLULOSE SODIUM
  8. MOXIFLOXACIN [Concomitant]
     Active Substance: MOXIFLOXACIN
  9. JAKAFI [Concomitant]
     Active Substance: RUXOLITINIB
  10. LEVOTHYROXINE SODIUM [Concomitant]
     Active Substance: LEVOTHYROXINE SODIUM
  11. SULFAMETHOXAZOLE\TRIMETHOPRIM [Concomitant]
     Active Substance: SULFAMETHOXAZOLE\TRIMETHOPRIM
  12. TRAZODONE HCL [Concomitant]
     Active Substance: TRAZODONE HYDROCHLORIDE
  13. CALCIUM CARBONATE [Concomitant]
     Active Substance: CALCIUM CARBONATE
  14. PREDNISOLONE ACETATE [Concomitant]
     Active Substance: PREDNISOLONE ACETATE
  15. DIPHENHYDRAMINE HYDROCHLORIDE [Concomitant]
     Active Substance: DIPHENHYDRAMINE HYDROCHLORIDE
  16. AMOXICILLIN [Concomitant]
     Active Substance: AMOXICILLIN
  17. NEOMYCIN-POLYMYXIN-DEXAMETH [Concomitant]
  18. ALENDRONATE SODIUM [Concomitant]
     Active Substance: ALENDRONATE SODIUM
  19. TACROLIMUS [Concomitant]
     Active Substance: TACROLIMUS
  20. VENLAFAXINE HCL [Concomitant]
     Active Substance: VENLAFAXINE HYDROCHLORIDE
  21. XIIDRA [Concomitant]
     Active Substance: LIFITEGRAST
  22. PREDNISONE [Concomitant]
     Active Substance: PREDNISONE
  23. ESZOPICLONE [Concomitant]
     Active Substance: ESZOPICLONE
  24. ACYCLOVIR [Concomitant]
     Active Substance: ACYCLOVIR
  25. VITAMIN B12 [Concomitant]
     Active Substance: CYANOCOBALAMIN
  26. TRAZODONE HCL [Concomitant]
     Active Substance: TRAZODONE HYDROCHLORIDE

REACTIONS (1)
  - Treatment noncompliance [Unknown]
